FAERS Safety Report 4351409-6 (Version None)
Quarter: 2004Q2

REPORT INFORMATION
  Report Type: 
  Country: None (occurrence: None)
  Receive Date: 20040428
  Receipt Date: 20040421
  Transmission Date: 20050107
  Serious: Yes (Death)
  Sender: FDA-Public Use
  Company Number: 2003-08-2798

PATIENT
  Age: 40 Year
  Sex: Male

DRUGS (8)
  1. PEG-INTRON [Suspect]
     Indication: HEPATITIS C
     Dosage: 150-120 QWK SUBCUTANEOUS; 150 MCG QWK SUBCUTANEOUS; 120 MCG QWK SUBCUTANEOUS
     Route: 058
     Dates: start: 20020726, end: 20020819
  2. PEG-INTRON [Suspect]
     Indication: HEPATITIS C
     Dosage: 150-120 QWK SUBCUTANEOUS; 150 MCG QWK SUBCUTANEOUS; 120 MCG QWK SUBCUTANEOUS
     Route: 058
     Dates: start: 20020726, end: 20030721
  3. PEG-INTRON [Suspect]
     Indication: HEPATITIS C
     Dosage: 150-120 QWK SUBCUTANEOUS; 150 MCG QWK SUBCUTANEOUS; 120 MCG QWK SUBCUTANEOUS
     Route: 058
     Dates: start: 20030626, end: 20030721
  4. REBETOL [Suspect]
     Indication: HEPATITIS C
     Dosage: 1200 MG QD, ORAL
     Route: 048
     Dates: start: 20020726, end: 20020819
  5. REBETOL [Suspect]
     Indication: HEPATITIS C
     Dosage: 1200 MG QD, ORAL
     Route: 048
     Dates: start: 20020726, end: 20030721
  6. REBETOL [Suspect]
     Indication: HEPATITIS C
     Dosage: 1200 MG QD, ORAL
     Route: 048
     Dates: start: 20030626, end: 20030721
  7. OXYCODONE PRN [Concomitant]
  8. MULTI-VITAMINS [Concomitant]

REACTIONS (4)
  - ASCITES [None]
  - ASTHENIA [None]
  - JAUNDICE [None]
  - NAUSEA [None]
